FAERS Safety Report 7012823-3 (Version None)
Quarter: 2010Q3

REPORT INFORMATION
  Report Type: 
  Country: None (occurrence: None)
  Receive Date: 20100924
  Receipt Date: 20100915
  Transmission Date: 20110219
  Serious: Yes (Hospitalization)
  Sender: FDA-Public Use
  Company Number: B0674949A

PATIENT
  Age: 60 Year
  Sex: Female

DRUGS (1)
  1. TYVERB [Suspect]
     Indication: PRODUCT USED FOR UNKNOWN INDICATION
     Dates: start: 20090801

REACTIONS (2)
  - DYSPHAGIA [None]
  - OESOPHAGEAL OBSTRUCTION [None]
